FAERS Safety Report 5267096-9 (Version None)
Quarter: 2007Q1

REPORT INFORMATION
  Report Type: 
  Country: None (occurrence: None)
  Receive Date: 20061213
  Receipt Date: 20030513
  Transmission Date: 20070707
  Serious: Yes (Life-Threatening, Hospitalization)
  Sender: FDA-Public Use
  Company Number: 2003UW00129

PATIENT
  Age: 67 Year
  Sex: Female

DRUGS (10)
  1. ARIMIDEX [Suspect]
     Indication: BREAST CANCER
     Dosage: 1 MG DAILY PO
     Route: 048
     Dates: start: 20021220, end: 20021230
  2. ARIMIDEX [Suspect]
     Indication: BREAST CANCER
     Dosage: 1 MG DAILY PO
     Route: 048
     Dates: start: 19980609, end: 20021219
  3. NOLVADEX [Suspect]
     Indication: BREAST CANCER
     Dosage: 20 MG DAILY PO
     Route: 048
     Dates: start: 19980609, end: 20021219
  4. ZOCOR [Concomitant]
  5. IBUPROFEN [Concomitant]
  6. POTASSIUM ACETATE [Concomitant]
  7. PREVACID [Concomitant]
  8. HYDROCHLOROTHIAZIDE [Concomitant]
  9. ELAVIL [Concomitant]
  10. NORVASC [Concomitant]

REACTIONS (1)
  - PULMONARY EMBOLISM [None]
